FAERS Safety Report 4950138-5 (Version None)
Quarter: 2006Q1

REPORT INFORMATION
  Report Type: 
  Country: None (occurrence: None)
  Receive Date: 20060315
  Receipt Date: 20060307
  Transmission Date: 20060701
  Serious: Yes (Other)
  Sender: FDA-Public Use
  Company Number: 200611302BWH

PATIENT
  Age: 26 Year
  Sex: Female

DRUGS (1)
  1. AVELOX [Suspect]
     Indication: SINUSITIS
     Dosage: ONCE, ORAL
     Route: 048

REACTIONS (4)
  - APHASIA [None]
  - CONVULSION [None]
  - MUSCLE TWITCHING [None]
  - PARALYSIS [None]
